FAERS Safety Report 6168198-5 (Version None)
Quarter: 2009Q2

REPORT INFORMATION
  Report Type: 
  Country: None (occurrence: None)
  Receive Date: 20090427
  Receipt Date: 20090420
  Transmission Date: 20091009
  Serious: Yes (Other)
  Sender: FDA-Public Use
  Company Number: PHEH2008US03557

PATIENT
  Sex: Female

DRUGS (1)
  1. ZOMETA [Suspect]
     Dosage: 80 MG, QMO

REACTIONS (9)
  - ACUTE MYOCARDIAL INFARCTION [None]
  - CENTRAL VENOUS CATHETERISATION [None]
  - DEFORMITY [None]
  - DRUG HYPERSENSITIVITY [None]
  - ENDOTRACHEAL INTUBATION [None]
  - INFECTION [None]
  - LYMPHADENOPATHY [None]
  - OSTEONECROSIS [None]
  - PAIN [None]
